FAERS Safety Report 6412232-1 (Version None)
Quarter: 2009Q4

REPORT INFORMATION
  Report Type: 
  Country: None (occurrence: None)
  Receive Date: 20091023
  Receipt Date: 20091016
  Transmission Date: 20100525
  Serious: Yes (Death)
  Sender: FDA-Public Use
  Company Number: B0598798A

PATIENT
  Sex: Female

DRUGS (3)
  1. LANOXIN [Suspect]
     Indication: ATRIAL FIBRILLATION
     Route: 065
     Dates: start: 19950101, end: 20090901
  2. ISOSORBIDE [Concomitant]
     Route: 048
     Dates: start: 19950101, end: 20090901
  3. FEMARA [Concomitant]
     Route: 048
     Dates: start: 19950101, end: 20090901

REACTIONS (3)
  - CARDIOACTIVE DRUG LEVEL INCREASED [None]
  - NAUSEA [None]
  - VOMITING [None]
